FAERS Safety Report 4650010-4 (Version None)
Quarter: 2005Q2

REPORT INFORMATION
  Report Type: 
  Country: None (occurrence: None)
  Receive Date: 20050428
  Receipt Date: 20050401
  Transmission Date: 20051028
  Serious: Yes (Hospitalization)
  Sender: FDA-Public Use
  Company Number: GB-YAMANOUCHI-YEHQ20050450

PATIENT
  Sex: Female

DRUGS (4)
  1. VESICARE [Suspect]
     Indication: URINARY INCONTINENCE
     Dosage: 10 MG DAILY PO
     Route: 048
  2. VESICARE [Suspect]
     Indication: URINARY INCONTINENCE
     Dosage: 10 MG DAILY PO
     Route: 048
  3. THYROXINE [Concomitant]
  4. ACETAMINOPHEN [Concomitant]

REACTIONS (2)
  - GASTRIC ULCER [None]
  - GASTROINTESTINAL HAEMORRHAGE [None]
